FAERS Safety Report 14694181 (Version 1)
Quarter: 2018Q1

REPORT INFORMATION
  Report Type: Spontaneous
  Country: US (occurrence: US)
  Receive Date: 20180329
  Receipt Date: 20180329
  Transmission Date: 20180509
  Serious: Yes (Other)
  Sender: FDA-Public Use
  Company Number: US-PFIZER INC-2018121320

PATIENT
  Age: 56 Year
  Sex: Female
  Weight: 79 kg

DRUGS (1)
  1. NORVASC [Suspect]
     Active Substance: AMLODIPINE BESYLATE
     Indication: HYPERTENSION
     Dosage: 5 MG, 1X/DAY
     Route: 048

REACTIONS (7)
  - Palpitations [Not Recovered/Not Resolved]
  - Tachycardia [Unknown]
  - Angina pectoris [Unknown]
  - Gastrooesophageal reflux disease [Unknown]
  - Joint swelling [Recovering/Resolving]
  - Chest discomfort [Unknown]
  - Breast discomfort [Recovering/Resolving]

NARRATIVE: CASE EVENT DATE: 2016
